FAERS Safety Report 8710369 (Version 2)
Quarter: 2013Q4

REPORT INFORMATION
  Report Type: Spontaneous
  Country: US (occurrence: US)
  Receive Date: 20120807
  Receipt Date: 20131028
  Transmission Date: 20140711
  Serious: Yes (Other)
  Sender: FDA-Public Use
  Company Number: US-BAYER-2012-077901

PATIENT
  Age: 37 Year
  Sex: Female
  Weight: 122.45 kg

DRUGS (11)
  1. MIRENA [Suspect]
     Indication: CONTRACEPTION
     Dosage: 20 MCG/24HR, CONT
     Route: 015
     Dates: start: 20091118, end: 20110829
  2. MIRENA [Suspect]
     Indication: MENORRHAGIA
     Dosage: UNK
     Dates: start: 20091221, end: 20110829
  3. CIPRO [Concomitant]
     Dosage: 250 MG,12 HOURS FOR 7 DAYS
     Route: 048
     Dates: start: 20110610
  4. EES [Concomitant]
     Dosage: 400 MG, 4 TIMES PER DAY FOR 14 DAYS
     Route: 048
     Dates: start: 20110623
  5. IMITREX [Concomitant]
     Indication: MIGRAINE
     Dosage: 100 MG, UNK
     Route: 048
     Dates: start: 20110623
  6. MACROBID [Concomitant]
     Dosage: 100 MG, BID
     Route: 048
     Dates: start: 20110725
  7. MOBIC [Concomitant]
     Dosage: 15 MG, UNK
     Route: 048
  8. ULTRAM [Concomitant]
     Indication: PAIN
     Dosage: 50 MG, UNK
     Route: 048
  9. XANAX [Concomitant]
  10. AMBIEN [Concomitant]
     Dosage: 10 MG, ONCE DAILY AT BEDTIME FOR 5 DAYS
     Route: 048
  11. FLEXERIL [Concomitant]
     Indication: PAIN
     Dosage: 10 MG, UNK
     Route: 048

REACTIONS (16)
  - Embedded device [None]
  - Abdominal pain lower [None]
  - Pain [None]
  - Ovarian cyst [None]
  - Injury [None]
  - Emotional disorder [None]
  - Bladder disorder [None]
  - Urinary tract disorder [None]
  - Urinary tract infection [None]
  - Scar [None]
  - Weight increased [None]
  - Dyspareunia [None]
  - Anxiety [None]
  - Hysterectomy [None]
  - Oophorectomy [None]
  - Pelvic adhesions [None]
